FAERS Safety Report 17287103 (Version 1)
Quarter: 2020Q1

REPORT INFORMATION
  Report Type: Report from Study
  Country: US (occurrence: US)
  Receive Date: 20200120
  Receipt Date: 20200120
  Transmission Date: 20200409
  Serious: Yes (Other)
  Sender: FDA-Public Use
  Company Number: US-ROCHE-2442802

PATIENT
  Sex: Female
  Weight: 72.64 kg

DRUGS (4)
  1. ACTEMRA [Suspect]
     Active Substance: TOCILIZUMAB
     Indication: TEMPORAL ARTERITIS
     Dosage: TAKES ACTEMRA WEEKLY, ON THURSDAYS
     Route: 058
     Dates: start: 201905
  2. PREDNISONE. [Concomitant]
     Active Substance: PREDNISONE
     Route: 065
     Dates: start: 201811
  3. ACTEMRA [Suspect]
     Active Substance: TOCILIZUMAB
     Indication: PARKINSON^S DISEASE
  4. PREDNISONE. [Concomitant]
     Active Substance: PREDNISONE
     Route: 048

REACTIONS (4)
  - Insomnia [Unknown]
  - Weight increased [Unknown]
  - Lower limb fracture [Unknown]
  - Ocular discomfort [Not Recovered/Not Resolved]
